FAERS Safety Report 9587006 (Version 1)
Quarter: 2013Q4

REPORT INFORMATION
  Report Type: Spontaneous
  Country: US (occurrence: US)
  Receive Date: 20131003
  Receipt Date: 20131003
  Transmission Date: 20140711
  Serious: Yes (Other)
  Sender: FDA-Public Use
  Company Number: 2013SP002800

PATIENT
  Sex: Female
  Weight: 99 kg

DRUGS (4)
  1. XOPENEX INHALATION SOLUTION [Suspect]
     Indication: ASTHMA
     Route: 055
     Dates: end: 201308
  2. LASIX /00032601/ [Concomitant]
     Indication: FLUID RETENTION
     Route: 048
  3. HUMALOG [Concomitant]
     Indication: TYPE 1 DIABETES MELLITUS
  4. HUMALOG MIX [Concomitant]
     Indication: TYPE 1 DIABETES MELLITUS

REACTIONS (10)
  - Gait disturbance [Unknown]
  - Disease progression [Unknown]
  - Dyspnoea [Unknown]
  - Oropharyngeal pain [Unknown]
  - Apathy [Unknown]
  - Malaise [Unknown]
  - Insomnia [Unknown]
  - Body temperature decreased [Unknown]
  - Chills [Unknown]
  - Headache [Unknown]
